FAERS Safety Report 21400483 (Version 1)
Quarter: 2022Q3

REPORT INFORMATION
  Report Type: Spontaneous
  Country: US (occurrence: None)
  Receive Date: 20220930
  Receipt Date: 20220930
  Transmission Date: 20221026
  Serious: Yes (Hospitalization)
  Sender: FDA-Public Use
  Company Number: None

PATIENT
  Age: 23 Month
  Sex: Female

DRUGS (7)
  1. CREON [Suspect]
     Active Substance: PANCRELIPASE AMYLASE\PANCRELIPASE LIPASE\PANCRELIPASE PROTEASE
     Indication: Cystic fibrosis
     Dosage: OTHER STRENGTH : 6,000 UNIT CAP;?OTHER QUANTITY : 6000-19000 UNIT;?FREQUENCY : AS DIRECTED;?
     Route: 048
     Dates: start: 20220211
  2. ALBUTEROL [Concomitant]
     Active Substance: ALBUTEROL
  3. AMOXICILLIN SUS [Concomitant]
  4. PULMOZYME [Concomitant]
     Active Substance: DORNASE ALFA
  5. SULFATRIM PD SUS [Concomitant]
  6. TOBRAMYCIN [Concomitant]
     Active Substance: TOBRAMYCIN
  7. KITAAB GEO [Concomitant]

REACTIONS (3)
  - Conjunctivitis [None]
  - Cough [None]
  - Pyrexia [None]

NARRATIVE: CASE EVENT DATE: 20220920
